FAERS Safety Report 6695075-3 (Version None)
Quarter: 2010Q2

REPORT INFORMATION
  Report Type: 
  Country: None (occurrence: None)
  Receive Date: 20100423
  Receipt Date: 20100415
  Transmission Date: 20101027
  Serious: Yes (Other)
  Sender: FDA-Public Use
  Company Number: PHHY2010US21689

PATIENT
  Age: 85 Year
  Sex: Female

DRUGS (9)
  1. RECLAST [Suspect]
     Dosage: 5 MG
     Route: 042
  2. SYNTHROID [Concomitant]
     Dosage: UNK
  3. CELEXA [Concomitant]
     Dosage: UNK
  4. LORTAB [Concomitant]
     Dosage: UNK
  5. AZURIL [Concomitant]
     Indication: BLOOD PRESSURE
     Dosage: UNK
  6. METOPROLOL TARTRATE [Concomitant]
     Dosage: UNK
  7. ADVIL [Concomitant]
     Indication: ANXIETY
     Dosage: UNK
  8. CITALOPRAM HYDROBROMIDE [Concomitant]
  9. DIGOXIN [Concomitant]

REACTIONS (5)
  - BLOOD PRESSURE ABNORMAL [None]
  - MYALGIA [None]
  - PAIN [None]
  - POLYMYALGIA RHEUMATICA [None]
  - RED BLOOD CELL SEDIMENTATION RATE INCREASED [None]
